FAERS Safety Report 6613198-1 (Version None)
Quarter: 2010Q1

REPORT INFORMATION
  Report Type: 
  Country: None (occurrence: None)
  Receive Date: 20100304
  Receipt Date: 20100219
  Transmission Date: 20100710
  Serious: Yes (Hospitalization)
  Sender: FDA-Public Use
  Company Number: US-ELI_LILLY_AND_COMPANY-US201002003474

PATIENT
  Sex: Female
  Weight: 68.934 kg

DRUGS (16)
  1. GEMCITABINE HCL [Suspect]
     Indication: BREAST CANCER METASTATIC
     Dosage: UNK, UNK
     Dates: start: 20091102, end: 20100201
  2. DOCETAXEL [Suspect]
     Indication: BREAST CANCER METASTATIC
     Dosage: UNK, UNK
     Dates: start: 20091102, end: 20100126
  3. BEVACIZUMAB [Suspect]
     Indication: BREAST CANCER METASTATIC
     Dates: start: 20091102, end: 20091215
  4. BEVACIZUMAB [Suspect]
     Dosage: UNK, UNK
     Dates: start: 20100126, end: 20100126
  5. LOVENOX [Concomitant]
     Indication: DEEP VEIN THROMBOSIS
     Dosage: 40 MG, DAILY (1/D)
     Route: 058
     Dates: start: 20091201
  6. SYNTHROID [Concomitant]
     Dosage: 112 UG, DAILY (1/D)
  7. TOPROL-XL [Concomitant]
     Dosage: 100 MG, 2/D
     Dates: start: 20100101, end: 20100201
  8. NEURONTIN [Concomitant]
     Dosage: 300 MG, 2/D
  9. SINEMET [Concomitant]
     Dosage: 1 D/F, 3/D
     Route: 048
  10. DYAZIDE [Concomitant]
     Dosage: 1 D/F, UNK
  11. LISINOPRIL [Concomitant]
     Dosage: 20 MG, UNK
     Dates: end: 20100101
  12. LISINOPRIL [Concomitant]
     Dosage: 5 MG, DAILY (1/D)
     Route: 048
     Dates: start: 20100201
  13. NORVASC [Concomitant]
     Dosage: 2.5 MG, UNK
     Dates: end: 20100101
  14. PRILOSEC [Concomitant]
     Dosage: 20 MG, UNK
  15. CALCIUM [Concomitant]
     Dosage: UNK, DAILY (1/D)
  16. TYLENOL (CAPLET) [Concomitant]
     Dosage: UNK, AS NEEDED

REACTIONS (6)
  - CARDIAC FAILURE CONGESTIVE [None]
  - DEHYDRATION [None]
  - DIARRHOEA [None]
  - DIZZINESS [None]
  - ENTEROCOCCAL SEPSIS [None]
  - NAUSEA [None]
